FAERS Safety Report 14232478 (Version 1)
Quarter: 2017Q4

REPORT INFORMATION
  Report Type: Spontaneous
  Country: US (occurrence: None)
  Receive Date: 20171128
  Receipt Date: 20171128
  Transmission Date: 20180321
  Serious: Yes (Death)
  Sender: FDA-Public Use
  Company Number: None

PATIENT
  Age: 85 Year
  Sex: Male

DRUGS (1)
  1. XTANDI [Suspect]
     Active Substance: ENZALUTAMIDE
     Indication: PROSTATE CANCER
     Dosage: 4 CAPSULES (160MG) ONCE DAILY BY MOUTH
     Route: 048
     Dates: start: 20170926, end: 20171111

REACTIONS (1)
  - Death [None]

NARRATIVE: CASE EVENT DATE: 20171111
